FAERS Safety Report 8808679 (Version 2)
Quarter: 2012Q4

REPORT INFORMATION
  Report Type: Report from Study
  Country: DE (occurrence: DE)
  Receive Date: 20120926
  Receipt Date: 20121001
  Transmission Date: 20130627
  Serious: Yes (Hospitalization)
  Sender: FDA-Public Use
  Company Number: DE-MILLENNIUM PHARMACEUTICALS, INC.-2012-06597

PATIENT

DRUGS (6)
  1. VELCADE [Suspect]
     Indication: MULTIPLE MYELOMA
     Dosage: UNK
     Route: 065
     Dates: start: 20110812, end: 20120227
  2. ACICLOVIR [Concomitant]
  3. ROCEPHIN                           /00672201/ [Concomitant]
     Dosage: UNK
     Dates: start: 20111115
  4. METRONIDAZOL                       /00012501/ [Concomitant]
     Dosage: UNK
     Dates: start: 20111115
  5. CIPROFLOXACIN [Concomitant]
     Dosage: UNK
     Dates: start: 20111118
  6. PANTOPRAZOL [Concomitant]
     Dosage: UNK
     Dates: start: 20110920

REACTIONS (1)
  - Skin ulcer [Not Recovered/Not Resolved]
